FAERS Safety Report 8387522-6 (Version None)
Quarter: 2012Q2

REPORT INFORMATION
  Report Type: 
  Country: None (occurrence: None)
  Receive Date: 20120525
  Receipt Date: 20120522
  Transmission Date: 20120825
  Serious: Yes (Other)
  Sender: FDA-Public Use
  Company Number: PHEH2012US007110

PATIENT
  Sex: Male

DRUGS (2)
  1. DEFEROXAMINE MESYLATE [Suspect]
  2. EXJADE [Suspect]
     Indication: IRON OVERLOAD
     Dosage: 1500 MG, QD
     Route: 048
     Dates: start: 20110801

REACTIONS (2)
  - VISUAL IMPAIRMENT [None]
  - MACULOPATHY [None]
